FAERS Safety Report 5246535-3 (Version None)
Quarter: 2007Q1

REPORT INFORMATION
  Report Type: 
  Country: None (occurrence: None)
  Receive Date: 20070226
  Receipt Date: 20070209
  Transmission Date: 20070707
  Serious: Yes (Hospitalization, Other)
  Sender: FDA-Public Use
  Company Number: US-AMGEN-STX210870

PATIENT
  Sex: Female

DRUGS (2)
  1. ENBREL [Suspect]
     Indication: JUVENILE ARTHRITIS
     Route: 058
     Dates: start: 20060501
  2. METHOTREXATE [Concomitant]
     Indication: JUVENILE ARTHRITIS
     Route: 048
     Dates: start: 20061201, end: 20070105

REACTIONS (8)
  - ALOPECIA [None]
  - COUGH [None]
  - ERYTHEMA [None]
  - EYE SWELLING [None]
  - HEPATIC ENZYME INCREASED [None]
  - SKIN DISCOLOURATION [None]
  - SKIN INFECTION [None]
  - SWELLING FACE [None]
